FAERS Safety Report 5746071-1 (Version None)
Quarter: 2008Q2

REPORT INFORMATION
  Report Type: 
  Country: None (occurrence: None)
  Receive Date: 20080522
  Receipt Date: 20080513
  Transmission Date: 20081010
  Serious: Yes (Hospitalization)
  Sender: FDA-Public Use
  Company Number: FR-JNJFOC-20060503548

PATIENT
  Sex: Female
  Weight: 83 kg

DRUGS (4)
  1. REMICADE [Suspect]
     Route: 042
  2. REMICADE [Suspect]
     Route: 042
  3. REMICADE [Suspect]
     Indication: CROHN'S DISEASE
     Route: 042
  4. RIVASTIGMINE TARTRATE [Concomitant]

REACTIONS (4)
  - CEREBRAL ATROPHY [None]
  - ISCHAEMIC STROKE [None]
  - NEPHRITIS [None]
  - PYELONEPHRITIS ACUTE [None]
